FAERS Safety Report 15223172 (Version 2)
Quarter: 2018Q3

REPORT INFORMATION
  Report Type: Report from Study
  Country: CA (occurrence: CA)
  Receive Date: 20180731
  Receipt Date: 20180906
  Transmission Date: 20181010
  Serious: Yes (Hospitalization, Other)
  Sender: FDA-Public Use
  Company Number: CA-JNJFOC-20180322290

PATIENT
  Age: 65 Year
  Sex: Male
  Weight: 66.7 kg

DRUGS (3)
  1. HYDROCORTISONE. [Concomitant]
     Active Substance: HYDROCORTISONE
     Indication: PREMEDICATION
     Route: 042
  2. REMICADE [Suspect]
     Active Substance: INFLIXIMAB
     Indication: CROHN^S DISEASE
     Route: 042
     Dates: start: 20101112
  3. REMICADE [Suspect]
     Active Substance: INFLIXIMAB
     Indication: CROHN^S DISEASE
     Dosage: STRENGTH = 100 MG
     Route: 042
     Dates: start: 20090417

REACTIONS (6)
  - Appendicectomy [Unknown]
  - Retro-pubic prostatectomy [Unknown]
  - Post procedural complication [Recovering/Resolving]
  - Post procedural infection [Recovering/Resolving]
  - Dysuria [Recovering/Resolving]
  - Cystitis [Recovering/Resolving]

NARRATIVE: CASE EVENT DATE: 201803
